FAERS Safety Report 23825970 (Version 1)
Quarter: 2024Q2

REPORT INFORMATION
  Report Type: Other
  Country: CN (occurrence: CN)
  Receive Date: 20240507
  Receipt Date: 20240507
  Transmission Date: 20240716
  Serious: Yes (Life-Threatening)
  Sender: FDA-Public Use
  Company Number: CN-B.Braun Medical Inc.-2156643

PATIENT
  Age: 62 Year
  Sex: Male

DRUGS (5)
  1. METRONIDAZOLE [Suspect]
     Active Substance: METRONIDAZOLE
     Indication: Clostridial infection
  2. PENICILLIN [Suspect]
     Active Substance: PENICILLIN
  3. HUMAN RED BLOOD CELL [Concomitant]
     Active Substance: HUMAN RED BLOOD CELL
  4. ALBUMIN HUMAN [Concomitant]
     Active Substance: ALBUMIN HUMAN
  5. Non-steroidal anti-inflammatory drugs [Concomitant]

REACTIONS (1)
  - Drug ineffective [Unknown]
